FAERS Safety Report 7688504-X (Version None)
Quarter: 2011Q3

REPORT INFORMATION
  Report Type: 
  Country: None (occurrence: None)
  Receive Date: 20110817
  Receipt Date: 20110803
  Transmission Date: 20111222
  Serious: Yes (Other)
  Sender: FDA-Public Use
  Company Number: DE-CELGENEUS-062-21880-11080587

PATIENT

DRUGS (3)
  1. REVLIMID [Suspect]
     Dosage: 10 MILLIGRAM
     Route: 048
  2. REVLIMID [Suspect]
  3. IMMUNOSUPPRESSION [Concomitant]
     Route: 065

REACTIONS (8)
  - BONE MARROW TOXICITY [None]
  - THROMBOCYTOPENIA [None]
  - ACUTE GRAFT VERSUS HOST DISEASE [None]
  - CONDITION AGGRAVATED [None]
  - NAUSEA [None]
  - NEUTROPENIA [None]
  - ADVERSE EVENT [None]
  - GRAFT VERSUS HOST DISEASE [None]
